FAERS Safety Report 16475168 (Version 1)
Quarter: 2019Q2

REPORT INFORMATION
  Report Type: Spontaneous
  Country: US (occurrence: US)
  Receive Date: 20190625
  Receipt Date: 20190625
  Transmission Date: 20190711
  Serious: No
  Sender: FDA-Public Use
  Company Number: US-HORIZON-PEN-0605-2019

PATIENT
  Age: 45 Year
  Sex: Male

DRUGS (2)
  1. PENNSAID [Suspect]
     Active Substance: DICLOFENAC SODIUM
     Indication: ARTHROPATHY
     Dosage: 1 OR 2 PUMPS TWICE DAILY
     Dates: start: 20190513, end: 20190605
  2. SIMVASTATIN. [Concomitant]
     Active Substance: SIMVASTATIN

REACTIONS (9)
  - Rash generalised [Not Recovered/Not Resolved]
  - Application site scab [Not Recovered/Not Resolved]
  - Skin tightness [Not Recovered/Not Resolved]
  - Application site pain [Unknown]
  - Application site pruritus [Recovering/Resolving]
  - Swelling [Unknown]
  - Pruritus [Unknown]
  - Application site rash [Recovering/Resolving]
  - Off label use [Unknown]

NARRATIVE: CASE EVENT DATE: 20190513
